FAERS Safety Report 9988199 (Version 5)
Quarter: 2014Q2

REPORT INFORMATION
  Report Type: Report from Study
  Country: CA (occurrence: CA)
  Receive Date: 20140309
  Receipt Date: 20140602
  Transmission Date: 20141212
  Serious: Yes (Other)
  Sender: FDA-Public Use
  Company Number: PHHY2014CA025614

PATIENT
  Age: 42 Year
  Sex: Male

DRUGS (6)
  1. GILENYA [Suspect]
     Indication: RELAPSING-REMITTING MULTIPLE SCLEROSIS
     Dosage: 0.5 MG, QD
     Route: 048
     Dates: start: 20140212
  2. BACLOFEN [Concomitant]
  3. PROZAC [Concomitant]
  4. DETROL [Concomitant]
  5. POTASSIUM [Concomitant]
  6. MAGNESIUM [Concomitant]

REACTIONS (7)
  - Lymphadenopathy [Recovered/Resolved]
  - Oral herpes [Recovered/Resolved]
  - Cardiac flutter [Not Recovered/Not Resolved]
  - Tinnitus [Not Recovered/Not Resolved]
  - Pain of skin [Recovered/Resolved]
  - Fatigue [Unknown]
  - Back pain [Not Recovered/Not Resolved]
